FAERS Safety Report 9430068 (Version 1)
Quarter: 2013Q3

REPORT INFORMATION
  Report Type: Report from Study
  Country: US (occurrence: US)
  Receive Date: 20130730
  Receipt Date: 20130730
  Transmission Date: 20140515
  Serious: No
  Sender: FDA-Public Use
  Company Number: US-ABBOTT-13P-163-1075481-00

PATIENT
  Age: 72 Year
  Sex: Female
  Weight: 78.09 kg

DRUGS (6)
  1. NIASPAN (COATED) [Suspect]
     Indication: BLOOD CHOLESTEROL INCREASED
     Dosage: EVERY NIGHT
     Dates: start: 20130404
  2. ATENOLOL WTIH CHLOR [Concomitant]
     Indication: HYPERTENSION
  3. EFFEXOR [Concomitant]
     Indication: PRODUCT USED FOR UNKNOWN INDICATION
  4. ARMOUR THYROID [Concomitant]
     Indication: HYPOTHYROIDISM
  5. UNSPECIFIED SUPPLEMENTS [Concomitant]
     Indication: PRODUCT USED FOR UNKNOWN INDICATION
  6. UNKNOWN INHALER [Concomitant]
     Indication: BRONCHITIS

REACTIONS (8)
  - Bronchitis [Recovered/Resolved]
  - Pruritus generalised [Recovered/Resolved]
  - Feeling hot [Recovered/Resolved]
  - Erythema [Recovered/Resolved]
  - Burning sensation [Recovered/Resolved]
  - Pruritus [Not Recovered/Not Resolved]
  - Rash [Unknown]
  - Hypersensitivity [Unknown]
